FAERS Safety Report 7809291-8 (Version None)
Quarter: 2011Q4

REPORT INFORMATION
  Report Type: 
  Country: None (occurrence: None)
  Receive Date: 20111007
  Receipt Date: 20110926
  Transmission Date: 20120403
  Serious: Yes (Other)
  Sender: FDA-Public Use
  Company Number: US-ACCORD-010818

PATIENT

DRUGS (1)
  1. TACROLIMUS [Suspect]
     Indication: ORGAN TRANSPLANT

REACTIONS (1)
  - CATATONIA [None]
